FAERS Safety Report 10150983 (Version 1)
Quarter: 2014Q2

REPORT INFORMATION
  Report Type: Spontaneous
  Country: US (occurrence: US)
  Receive Date: 20140502
  Receipt Date: 20140502
  Transmission Date: 20141212
  Serious: No
  Sender: FDA-Public Use
  Company Number: US-PFIZER INC-2014118938

PATIENT
  Age: 58 Year
  Sex: Male

DRUGS (1)
  1. FLECTOR [Suspect]
     Indication: OSTEOARTHRITIS
     Dosage: UNK
     Route: 062
     Dates: start: 2011

REACTIONS (1)
  - Hypotension [Unknown]
